FAERS Safety Report 9155435 (Version 1)
Quarter: 2013Q1

REPORT INFORMATION
  Report Type: Spontaneous
  Country: US (occurrence: US)
  Receive Date: 20130311
  Receipt Date: 20130311
  Transmission Date: 20140127
  Serious: Yes (Other)
  Sender: FDA-Public Use
  Company Number: US-PFIZER INC-2013078290

PATIENT
  Age: 59 Year
  Sex: Female
  Weight: 81.18 kg

DRUGS (5)
  1. SERTRALINE HCL [Suspect]
     Indication: MAJOR DEPRESSION
     Dosage: 200 MG, 1X/DAY
     Route: 048
     Dates: start: 200905
  2. MIRTAZAPINE [Suspect]
     Indication: MAJOR DEPRESSION
     Dosage: 15 MG, 1X/DAY
     Route: 048
     Dates: start: 200905
  3. LEVOTHYROXINE [Concomitant]
     Dosage: UNK
  4. LIPITOR [Concomitant]
     Dosage: UNK
  5. PRILOSEC [Concomitant]
     Dosage: UNK

REACTIONS (3)
  - Coeliac disease [Not Recovered/Not Resolved]
  - Blood cholesterol increased [Not Recovered/Not Resolved]
  - Hypothyroidism [Not Recovered/Not Resolved]
